FAERS Safety Report 10695973 (Version 1)
Quarter: 2014Q4

REPORT INFORMATION
  Report Type: Spontaneous
  Country: US (occurrence: None)
  Receive Date: 20141223
  Receipt Date: 20141223
  Transmission Date: 20150529
  Serious: No
  Sender: FDA-Public Use
  Company Number: 1000066019

PATIENT
  Age: 93 Year
  Sex: Male

DRUGS (11)
  1. FINASTERIDE. [Concomitant]
     Active Substance: FINASTERIDE
  2. LACTULOSE. [Concomitant]
     Active Substance: LACTULOSE
  3. PRILOSEC (OMEPRAZOLE) [Concomitant]
     Active Substance: OMEPRAZOLE MAGNESIUM
  4. LINZESS [Suspect]
     Active Substance: LINACLOTIDE
     Indication: CONSTIPATION
     Route: 048
     Dates: start: 201403, end: 201403
  5. PLAVIX (CLOPIDOGREL BISULFATE) [Concomitant]
  6. PRAVACHOL (PRAVASTATIN SODIUM) [Concomitant]
  7. TAMULOSIN [Concomitant]
     Active Substance: TAMSULOSIN
  8. LINZESS [Suspect]
     Active Substance: LINACLOTIDE
     Indication: CONSTIPATION
     Route: 048
     Dates: start: 201403, end: 201403
  9. PAIN MEDICATION (NOS) [Concomitant]
     Active Substance: UNSPECIFIED INGREDIENT
  10. FOLIC ACID. [Concomitant]
     Active Substance: FOLIC ACID
  11. LINZESS [Suspect]
     Active Substance: LINACLOTIDE
     Indication: CONSTIPATION
     Route: 048
     Dates: start: 201403, end: 201403

REACTIONS (3)
  - Drug ineffective [None]
  - Diarrhoea [None]
  - Flatulence [None]

NARRATIVE: CASE EVENT DATE: 201403
